FAERS Safety Report 4779718-7 (Version None)
Quarter: 2005Q3

REPORT INFORMATION
  Report Type: 
  Country: None (occurrence: None)
  Receive Date: 20050914
  Receipt Date: 20050623
  Transmission Date: 20060218
  Serious: Yes (Life-Threatening, Hospitalization)
  Sender: FDA-Public Use
  Company Number: 163-20785-05060374

PATIENT
  Age: 68 Year
  Sex: Female

DRUGS (23)
  1. THALOMID [Suspect]
     Indication: MULTIPLE MYELOMA
     Dosage: 200 MG, QD, ORAL - CYCLE 1;  QD, ORAL - CYCLE 2
     Route: 048
     Dates: start: 20040522
  2. THALOMID [Suspect]
     Indication: MULTIPLE MYELOMA
     Dosage: 200 MG, QD, ORAL - CYCLE 1;  QD, ORAL - CYCLE 2
     Route: 048
     Dates: start: 20040703
  3. DEXAMETHASONE [Suspect]
     Indication: MULTIPLE MYELOMA
     Dosage: 40 MG, X4 DAYS Q28D, ORAL - CYCLE 1;  QD, ORAL - CYCLE 2
     Route: 048
     Dates: start: 20040522
  4. DEXAMETHASONE [Suspect]
     Indication: MULTIPLE MYELOMA
     Dosage: 40 MG, X4 DAYS Q28D, ORAL - CYCLE 1;  QD, ORAL - CYCLE 2
     Route: 048
     Dates: start: 20040703
  5. CISPLATIN [Suspect]
     Indication: MULTIPLE MYELOMA
     Dosage: 12 MG, QD, ORAL - CYCLE 1;  12 MG, QD, ORAL - CYCLE 2
     Route: 048
     Dates: start: 20040522
  6. CISPLATIN [Suspect]
     Indication: MULTIPLE MYELOMA
     Dosage: 12 MG, QD, ORAL - CYCLE 1;  12 MG, QD, ORAL - CYCLE 2
     Route: 048
     Dates: start: 20040703
  7. ADRIAMYCIN PFS [Suspect]
     Indication: MULTIPLE MYELOMA
     Dosage: 12 MG, QD, ORAL - CYCLE 1; 12 MG, QD, ORAL - CYCLE 2
     Route: 048
     Dates: start: 20040522
  8. ADRIAMYCIN PFS [Suspect]
     Indication: MULTIPLE MYELOMA
     Dosage: 12 MG, QD, ORAL - CYCLE 1; 12 MG, QD, ORAL - CYCLE 2
     Route: 048
     Dates: start: 20040703
  9. CYCLOPHOSPHAMIDE [Suspect]
     Indication: MULTIPLE MYELOMA
     Dosage: 474 MG, QD, ORAL - CYCLE 1;  474 MG, QD, ORAL - CYCLE 2
     Route: 048
     Dates: start: 20040522
  10. CYCLOPHOSPHAMIDE [Suspect]
     Indication: MULTIPLE MYELOMA
     Dosage: 474 MG, QD, ORAL - CYCLE 1;  474 MG, QD, ORAL - CYCLE 2
     Route: 048
     Dates: start: 20040703
  11. ETOPOSIDE [Suspect]
     Indication: MULTIPLE MYELOMA
     Dosage: 47 MG, QD, ORAL - CYCLE 1;  QD, ORAL - CYCLE 2
     Route: 048
     Dates: start: 20040522
  12. ETOPOSIDE [Suspect]
     Indication: MULTIPLE MYELOMA
     Dosage: 47 MG, QD, ORAL - CYCLE 1;  QD, ORAL - CYCLE 2
     Route: 048
     Dates: start: 20040703
  13. MELPHALAN (MELPHALAN) [Suspect]
     Indication: MULTIPLE MYELOMA
     Dosage: TRANSPLANT #1;  TRANSPLANT #2
     Dates: start: 20040824
  14. MELPHALAN (MELPHALAN) [Suspect]
     Indication: MULTIPLE MYELOMA
     Dosage: TRANSPLANT #1;  TRANSPLANT #2
     Dates: start: 20041116
  15. BORTEZOMIB (BORTEZOMIB) [Suspect]
     Indication: MULTIPLE MYELOMA
     Dosage: 1.6 MG, QD, INTRAVENOUS
     Route: 042
     Dates: start: 20040522
  16. BORTEZOMIB (BORTEZOMIB) [Suspect]
     Indication: MULTIPLE MYELOMA
     Dosage: 1.6 MG, QD, INTRAVENOUS
     Route: 042
     Dates: start: 20040703
  17. BORTEZOMIB (BORTEZOMIB) [Suspect]
     Indication: MULTIPLE MYELOMA
     Dosage: 1.6 MG, QD, INTRAVENOUS
     Route: 042
     Dates: start: 20050526
  18. BORTEZOMIB (BORTEZOMIB) [Suspect]
     Indication: MULTIPLE MYELOMA
     Dosage: 1.6 MG, QD, INTRAVENOUS
     Route: 042
     Dates: start: 20050529
  19. BORTEZOMIB (BORTEZOMIB) [Suspect]
     Indication: MULTIPLE MYELOMA
     Dosage: 1.6 MG, QD, INTRAVENOUS
     Route: 042
     Dates: start: 20050602
  20. AREDIA [Concomitant]
  21. LIPITOR [Concomitant]
  22. CALCIUM SUPPLEMENT (CALCIUM) [Concomitant]
  23. DEXAMETHASONE [Concomitant]

REACTIONS (8)
  - DEHYDRATION [None]
  - DIARRHOEA [None]
  - ELECTROLYTE IMBALANCE [None]
  - LEUKOPENIA [None]
  - NAUSEA [None]
  - STAPHYLOCOCCAL INFECTION [None]
  - THROMBOCYTOPENIA [None]
  - VOMITING [None]
